FAERS Safety Report 4840378-8 (Version None)
Quarter: 2005Q4

REPORT INFORMATION
  Report Type: 
  Country: None (occurrence: None)
  Receive Date: 20051031
  Receipt Date: 20050317
  Transmission Date: 20060501
  Serious: Yes (Other)
  Sender: FDA-Public Use
  Company Number: PHEH2005US03020

PATIENT
  Age: 55 Year
  Sex: Female

DRUGS (1)
  1. LESCOL [Suspect]
     Indication: HYPERCHOLESTEROLAEMIA
     Dosage: 80 MG, QD
     Dates: start: 20050105, end: 20050208

REACTIONS (8)
  - ALANINE AMINOTRANSFERASE INCREASED [None]
  - ANOREXIA [None]
  - FEELING COLD [None]
  - HEPATITIS [None]
  - NAUSEA [None]
  - PRURITUS [None]
  - RASH [None]
  - VOMITING [None]
